FAERS Safety Report 22060019 (Version 1)
Quarter: 2023Q1

REPORT INFORMATION
  Report Type: Spontaneous
  Country: US (occurrence: None)
  Receive Date: 20230303
  Receipt Date: 20230303
  Transmission Date: 20230417
  Serious: Yes (Other)
  Sender: FDA-Public Use
  Company Number: 2023A051386

PATIENT

DRUGS (2)
  1. TEZSPIRE [Suspect]
     Active Substance: TEZEPELUMAB-EKKO
     Indication: Asthma
  2. DUPLIUMAB [Concomitant]
     Indication: Asthma

REACTIONS (2)
  - Drug reaction with eosinophilia and systemic symptoms [Unknown]
  - Rash maculo-papular [Unknown]
